FAERS Safety Report 17563853 (Version 5)
Quarter: 2020Q2

REPORT INFORMATION
  Report Type: Report from Study
  Country: US (occurrence: US)
  Receive Date: 20200319
  Receipt Date: 20200612
  Transmission Date: 20200713
  Serious: Yes (Other)
  Sender: FDA-Public Use
  Company Number: NVSC2020US079873

PATIENT
  Sex: Female

DRUGS (2)
  1. GILENYA [Suspect]
     Active Substance: FINGOLIMOD HYDROCHLORIDE
     Indication: MULTIPLE SCLEROSIS
     Dosage: 0.5 MG, QD
     Route: 048
     Dates: start: 20200310
  2. GILENYA [Suspect]
     Active Substance: FINGOLIMOD HYDROCHLORIDE
     Dosage: 0.5 MG, QD
     Route: 048
     Dates: start: 20200409

REACTIONS (10)
  - Drug ineffective [Unknown]
  - Pain in extremity [Recovered/Resolved]
  - Muscle tightness [Unknown]
  - Hypoaesthesia [Unknown]
  - Fatigue [Recovered/Resolved]
  - Back pain [Recovered/Resolved]
  - Muscular weakness [Unknown]
  - Micturition urgency [Unknown]
  - Asthenia [Unknown]
  - Multiple sclerosis relapse [Not Recovered/Not Resolved]
